FAERS Safety Report 6231665-X (Version None)
Quarter: 2009Q2

REPORT INFORMATION
  Report Type: 
  Country: None (occurrence: None)
  Receive Date: 20090616
  Receipt Date: 20090610
  Transmission Date: 20091009
  Serious: Yes (Other)
  Sender: FDA-Public Use
  Company Number: GB-MERCK-0906GBR00057

PATIENT
  Age: 47 Year
  Sex: Female
  Weight: 79 kg

DRUGS (16)
  1. ZOCOR [Suspect]
     Indication: CARDIOVASCULAR EVENT PROPHYLAXIS
     Route: 048
     Dates: start: 20051130
  2. ZOCOR [Suspect]
     Route: 048
     Dates: end: 20090212
  3. ALENDRONIC ACID [Concomitant]
     Route: 048
     Dates: start: 20080401
  4. MESALAMINE [Concomitant]
     Indication: COLITIS
     Route: 048
     Dates: start: 20000401
  5. CALCIUM CARBONATE AND CHOLECALCIFEROL [Concomitant]
     Indication: CALCIUM DEFICIENCY
     Route: 048
     Dates: start: 20080401
  6. CETIRIZINE HYDROCHLORIDE [Concomitant]
     Route: 048
  7. ESOMEPRAZOLE [Concomitant]
     Indication: PROPHYLAXIS AGAINST GASTROINTESTINAL ULCER
     Route: 048
     Dates: start: 20031101
  8. FOLIC ACID [Concomitant]
     Indication: FOLATE DEFICIENCY
     Route: 048
  9. MELOXICAM [Concomitant]
     Indication: INFLAMMATION
     Route: 048
     Dates: start: 20050801
  10. MELOXICAM [Concomitant]
     Indication: PAIN
     Route: 048
     Dates: start: 20050801
  11. MESALAMINE [Concomitant]
     Route: 054
  12. METHOTREXATE [Concomitant]
     Indication: ENTEROCOLITIS
     Route: 048
     Dates: start: 20040701
  13. PREDNISOLONE [Concomitant]
     Route: 054
  14. SALMETEROL [Concomitant]
  15. FLUTICASONE PROPIONATE AND SALMETEROL XINAFOATE [Concomitant]
     Indication: ASTHMA
  16. ALBUTEROL SULFATE [Concomitant]
     Indication: ASTHMA

REACTIONS (1)
  - SENSORY DISTURBANCE [None]
